FAERS Safety Report 9506115 (Version 1)
Quarter: 2013Q1

REPORT INFORMATION
  Report Type: Spontaneous
  Country: US (occurrence: None)
  Receive Date: 20130305
  Receipt Date: 20130305
  Transmission Date: 20140127
  Serious: No
  Sender: FDA-Public Use
  Company Number: 1000040305

PATIENT
  Sex: Male

DRUGS (16)
  1. DALIRESP (ROFLUMILAST) (500 MICROGRAM, TABLETS) [Suspect]
     Indication: CHRONIC OBSTRUCTIVE PULMONARY DISEASE
     Dosage: 500 MCG (500 MCG, 1 IN 1
     Dates: start: 20121029, end: 20121106
  2. AZITHROMYCIN (AZITHROMYCIN) (AZITHEROMYCIN) [Concomitant]
  3. ADVAIR (SERETIDE) [Concomitant]
  4. PROVENTIL (PROVENTIL) (PROVENTIL) [Concomitant]
  5. IPRATHOPIUM ALBUTEROL (IPRATROPIUM ALBUTEROL) (IPRATROPIUM ALBUTEROL) [Concomitant]
  6. PREDNISONE (PREDNISONE) (PREDNISONE) [Concomitant]
  7. FUROSEMIDE [Concomitant]
  8. EXALGO (HYDROMORPHONE HYDROCHLORIDE) (HYDROMORPHONE HYDROCHLORIDE) [Concomitant]
  9. ATENOLOL (ATENOLOL) (ATENOLOL) [Concomitant]
  10. PRILOSEC (PRILOSEC) (PRILOSEC) [Concomitant]
  11. HYDROCODONE (HYDROCODONE) (HYDROCODONE) [Concomitant]
  12. MORPHINE (SULFATE (MORPHINE SULFATE) (MORPHINE SULFATE) [Concomitant]
  13. BENADRYL (BENADRYL) (BENADRYL) [Concomitant]
  14. BENADRYL (BENADRYL) (BENADRYL) [Concomitant]
  15. SORBITOL (SORBITOL) (SORBITOL) [Concomitant]
  16. PROLASTIN (ALPHA-1-ANTITRYPSIN) (ALPHA-1-ANTITRYPSIN) [Concomitant]

REACTIONS (1)
  - Oedema peripheral [None]
